FAERS Safety Report 8321815-3 (Version None)
Quarter: 2012Q2

REPORT INFORMATION
  Report Type: 
  Country: None (occurrence: None)
  Receive Date: 20120426
  Receipt Date: 20110613
  Transmission Date: 20120825
  Serious: Yes (Hospitalization)
  Sender: FDA-Public Use
  Company Number: 2011AL000026

PATIENT
  Age: 76 Year
  Sex: Female

DRUGS (5)
  1. MACROBID [Concomitant]
  2. METFORMIN HCL [Concomitant]
  3. PROZAC [Concomitant]
  4. MACROBID [Suspect]
     Indication: PRODUCT USED FOR UNKNOWN INDICATION
     Dosage: 100 MG
     Dates: start: 20110305
  5. SYNTHROID [Concomitant]

REACTIONS (4)
  - HYPOTENSION [None]
  - OXYGEN SATURATION DECREASED [None]
  - VOMITING [None]
  - PARAESTHESIA [None]
